FAERS Safety Report 11621632 (Version 1)
Quarter: 2015Q4

REPORT INFORMATION
  Report Type: Report from Study
  Country: US (occurrence: US)
  Receive Date: 20151013
  Receipt Date: 20151013
  Transmission Date: 20160304
  Serious: No
  Sender: FDA-Public Use
  Company Number: PHEH2015US020239

PATIENT
  Age: 22 Year
  Sex: Male

DRUGS (1)
  1. TOBI [Suspect]
     Active Substance: TOBRAMYCIN
     Indication: INFECTION
     Dosage: 300 MG, BID
     Route: 055
     Dates: start: 20151005, end: 20151008

REACTIONS (1)
  - Wrong device dispensed [Not Recovered/Not Resolved]

NARRATIVE: CASE EVENT DATE: 20151008
